FAERS Safety Report 18362074 (Version 1)
Quarter: 2020Q4

REPORT INFORMATION
  Report Type: Other
  Country: US (occurrence: US)
  Receive Date: 20201009
  Receipt Date: 20201009
  Transmission Date: 20210114
  Serious: No
  Sender: FDA-Public Use
  Company Number: US-ROCHE-2563353

PATIENT
  Age: 61 Year
  Sex: Male
  Weight: 99.88 kg

DRUGS (38)
  1. GABAPENTIN. [Concomitant]
     Active Substance: GABAPENTIN
     Route: 048
  2. LISINOPRIL. [Concomitant]
     Active Substance: LISINOPRIL
     Indication: HYPERTENSION
     Route: 048
  3. LANSPAZOLE [Concomitant]
     Indication: EROSIVE OESOPHAGITIS
     Dates: start: 201910, end: 201910
  4. PRAZOSIN. [Concomitant]
     Active Substance: PRAZOSIN
     Indication: NEUROGENIC BLADDER
     Route: 048
     Dates: start: 2019, end: 20200224
  5. OCREVUS [Suspect]
     Active Substance: OCRELIZUMAB
     Indication: PROGRESSIVE MULTIPLE SCLEROSIS
     Dosage: 600 MG EVERY 6 MONTHS AFTER NEXT 300 MG DOSE: ONGOING YES
     Route: 042
     Dates: start: 20200228
  6. BACLOFEN. [Concomitant]
     Active Substance: BACLOFEN
     Indication: MUSCULOSKELETAL PAIN
     Dosage: ONE TO TWO TABLETS AT BEDTIME
     Route: 048
     Dates: start: 20191021
  7. DONEPEZIL. [Concomitant]
     Active Substance: DONEPEZIL
     Route: 048
  8. MIRTAZAPINE. [Concomitant]
     Active Substance: MIRTAZAPINE
     Indication: BLOOD PRESSURE MEASUREMENT
     Route: 048
  9. COENZYME Q10 [Concomitant]
     Active Substance: DIETARY SUPPLEMENT\UBIDECARENONE
     Route: 048
  10. OCREVUS [Suspect]
     Active Substance: OCRELIZUMAB
     Dosage: FIRST HALF-DOSE (300 MG)
     Route: 042
     Dates: start: 20191022
  11. BACLOFEN. [Concomitant]
     Active Substance: BACLOFEN
     Route: 048
  12. ATENOLOL. [Concomitant]
     Active Substance: ATENOLOL
     Indication: HYPERTENSION
     Route: 048
  13. MISOPROSTOL. [Concomitant]
     Active Substance: MISOPROSTOL
     Indication: PAIN
     Dosage: FOR 10 DAYS
     Route: 048
     Dates: start: 20200924
  14. FLUARIX QUADRIVALENT [Concomitant]
     Dosage: ONE DOSE
     Dates: start: 20200827
  15. OXYCODONE [Concomitant]
     Active Substance: OXYCODONE
     Route: 048
  16. TYLENOL [Concomitant]
     Active Substance: ACETAMINOPHEN
     Indication: PREMEDICATION
  17. BENADRYL [Concomitant]
     Active Substance: DIPHENHYDRAMINE HYDROCHLORIDE
     Indication: PREMEDICATION
  18. SOLU-MEDROL [Concomitant]
     Active Substance: METHYLPREDNISOLONE SODIUM SUCCINATE
     Indication: PREMEDICATION
     Dosage: METHYLPREDINSONE SOLU-MEDROL SUCCINATE
  19. OXYCODONE HYDROCHLORIDE. [Concomitant]
     Active Substance: OXYCODONE HYDROCHLORIDE
     Indication: SPINAL PAIN
     Route: 048
  20. ACETAMINOPHEN PM [Concomitant]
     Active Substance: ACETAMINOPHEN\DIPHENHYDRAMINE HYDROCHLORIDE
     Dosage: TOTAL OF 1000 MG ACETAMINOPHEN AND 50 MG BENADRYL
     Route: 048
  21. VARICELLA-ZOSTER VACCINE NOS [Concomitant]
     Active Substance: VARICELLA-ZOSTER VACCINE
     Dosage: X 1 (FIRST DOSE)
     Dates: start: 20200131
  22. SUPER B COMPLEX WITH C [Concomitant]
     Route: 048
  23. VITAMIN D3 [Concomitant]
     Active Substance: CHOLECALCIFEROL
     Route: 048
  24. NEURONTIN [Concomitant]
     Active Substance: GABAPENTIN
     Route: 048
  25. NEURONTIN [Concomitant]
     Active Substance: GABAPENTIN
     Route: 048
     Dates: start: 202009
  26. MELOXICAM. [Concomitant]
     Active Substance: MELOXICAM
     Indication: SPINAL PAIN
     Route: 048
     Dates: start: 20200924
  27. ATENOLOL. [Concomitant]
     Active Substance: ATENOLOL
     Route: 048
  28. VITAMIN D3 [Concomitant]
     Active Substance: CHOLECALCIFEROL
     Route: 048
  29. MISOPROSTOL. [Concomitant]
     Active Substance: MISOPROSTOL
     Indication: FATIGUE
  30. VARICELLA-ZOSTER VACCINE NOS [Concomitant]
     Active Substance: VARICELLA-ZOSTER VACCINE
     Dosage: X 1 (2ND DOSE)
     Dates: start: 20200429
  31. MIRTAZAPINE. [Concomitant]
     Active Substance: MIRTAZAPINE
     Route: 048
  32. MYRBETRIQ [Concomitant]
     Active Substance: MIRABEGRON
     Indication: NEUROGENIC BLADDER
     Route: 048
     Dates: start: 20200225
  33. ARICEPT [Concomitant]
     Active Substance: DONEPEZIL HYDROCHLORIDE
     Indication: MEMORY IMPAIRMENT
     Route: 048
  34. BACLOFEN. [Concomitant]
     Active Substance: BACLOFEN
     Route: 048
  35. BACLOFEN. [Concomitant]
     Active Substance: BACLOFEN
     Route: 048
     Dates: start: 202009
  36. OMEPRAZOLE. [Concomitant]
     Active Substance: OMEPRAZOLE
     Indication: EROSIVE OESOPHAGITIS
     Route: 048
  37. ZOLOFT [Concomitant]
     Active Substance: SERTRALINE HYDROCHLORIDE
     Indication: DEPRESSION
     Route: 048
  38. COENZYME Q10 [Concomitant]
     Active Substance: DIETARY SUPPLEMENT\UBIDECARENONE
     Route: 048

REACTIONS (16)
  - Pain in jaw [Not Recovered/Not Resolved]
  - Paraesthesia [Not Recovered/Not Resolved]
  - Arthralgia [Not Recovered/Not Resolved]
  - Headache [Not Recovered/Not Resolved]
  - Rash [Unknown]
  - Dysphagia [Not Recovered/Not Resolved]
  - Ageusia [Not Recovered/Not Resolved]
  - Vomiting [Recovered/Resolved]
  - Fall [Unknown]
  - Magnetic resonance imaging abnormal [Not Recovered/Not Resolved]
  - Tinnitus [Recovering/Resolving]
  - Oropharyngeal pain [Unknown]
  - Tremor [Not Recovered/Not Resolved]
  - Oral candidiasis [Not Recovered/Not Resolved]
  - Throat tightness [Recovered/Resolved]
  - Musculoskeletal pain [Not Recovered/Not Resolved]

NARRATIVE: CASE EVENT DATE: 2020
